FAERS Safety Report 9440624 (Version 1)
Quarter: 2013Q3

REPORT INFORMATION
  Report Type: Spontaneous
  Country: DE (occurrence: DE)
  Receive Date: 20130805
  Receipt Date: 20130805
  Transmission Date: 20140515
  Serious: Yes (Other)
  Sender: FDA-Public Use
  Company Number: DE-CELGENEUS-062-21660-13064332

PATIENT
  Age: 49 Year
  Sex: Male
  Weight: 106.5 kg

DRUGS (2)
  1. ABRAXANE [Suspect]
     Indication: PRODUCT USED FOR UNKNOWN INDICATION
     Dosage: 200 MILLIGRAM
     Route: 065
     Dates: start: 20130516
  2. SEVIKAR [Concomitant]
     Indication: HYPERTENSION
     Route: 065
     Dates: start: 201212

REACTIONS (1)
  - Onycholysis [Not Recovered/Not Resolved]
